FAERS Safety Report 8367412 (Version 2)
Quarter: 2013Q1

REPORT INFORMATION
  Report Type: Report from Study
  Country: US (occurrence: US)
  Receive Date: 20120128
  Receipt Date: 20130129
  Transmission Date: 20140127
  Serious: No
  Sender: FDA-Public Use
  Company Number: US-ABBOTT-11P-163-0726722-00

PATIENT
  Sex: Female
  Weight: 90.8 kg

DRUGS (22)
  1. HUMIRA 40 MG/0.8 ML PEN [Suspect]
     Indication: PSORIATIC ARTHROPATHY
     Dosage: LOT NUMBER AND EXPIRATION DATE WERE UNAVAILABLE.
     Route: 058
     Dates: start: 201005, end: 201101
  2. HUMIRA 40 MG/0.8 ML PEN [Suspect]
     Indication: PSORIASIS
  3. ENBREL [Suspect]
     Indication: PSORIASIS
     Dates: start: 201102
  4. ENBREL [Suspect]
     Indication: PSORIATIC ARTHROPATHY
  5. METHOTREXATE [Concomitant]
     Indication: PSORIATIC ARTHROPATHY
     Route: 050
  6. METHOTREXATE [Concomitant]
     Indication: PSORIASIS
  7. LEVOXYL [Concomitant]
     Indication: AUTOIMMUNE THYROIDITIS
  8. LEVOXYL [Concomitant]
     Indication: HYPOTHYROIDISM
  9. ZOLOFT [Concomitant]
     Indication: DEPRESSION
  10. ZOLOFT [Concomitant]
     Indication: NERVOUSNESS
  11. ZOLOFT [Concomitant]
     Indication: TREMOR
  12. ZOLOFT [Concomitant]
     Indication: CRYING
  13. ALPRAZOLAM [Concomitant]
     Indication: DEPRESSION
  14. ALPRAZOLAM [Concomitant]
     Indication: NERVOUSNESS
  15. FOLIC ACID [Concomitant]
     Indication: SUPPLEMENTATION THERAPY
  16. MOBIC [Concomitant]
     Indication: MIGRAINE
     Dosage: DOSE DECREASED TO WEEKLY
     Dates: start: 20110518
  17. MOBIC [Concomitant]
     Dates: end: 20110518
  18. LANSOPRAZOLE [Concomitant]
     Indication: ABDOMINAL PAIN UPPER
     Dates: start: 201105
  19. VITAMINS [Concomitant]
     Indication: PRODUCT USED FOR UNKNOWN INDICATION
  20. RED YEAST RICE [Concomitant]
     Indication: PRODUCT USED FOR UNKNOWN INDICATION
  21. FISH OIL [Concomitant]
     Indication: PRODUCT USED FOR UNKNOWN INDICATION
  22. ASPIRIN [Concomitant]
     Indication: PRODUCT USED FOR UNKNOWN INDICATION

REACTIONS (14)
  - Red blood cell sedimentation rate abnormal [Not Recovered/Not Resolved]
  - Injection site rash [Unknown]
  - Injection site pruritus [Unknown]
  - Injection site warmth [Unknown]
  - Lacrimation increased [Unknown]
  - Malaise [Unknown]
  - Red blood cell sedimentation rate increased [Unknown]
  - Hair disorder [Not Recovered/Not Resolved]
  - Erythema of eyelid [Not Recovered/Not Resolved]
  - Dry eye [Not Recovered/Not Resolved]
  - Inflammation [Not Recovered/Not Resolved]
  - Joint swelling [Not Recovered/Not Resolved]
  - Arthralgia [Not Recovered/Not Resolved]
  - Oedema peripheral [Not Recovered/Not Resolved]
